FAERS Safety Report 25143852 (Version 1)
Quarter: 2025Q2

REPORT INFORMATION
  Report Type: Spontaneous
  Country: US (occurrence: US)
  Receive Date: 20250401
  Receipt Date: 20250401
  Transmission Date: 20250717
  Serious: No
  Sender: MERCK SHARP AND DOHME
  Company Number: US-009507513-2261886

PATIENT

DRUGS (1)
  1. BELSOMRA [Suspect]
     Active Substance: SUVOREXANT

REACTIONS (1)
  - Product dose omission issue [Unknown]
